FAERS Safety Report 19249900 (Version 4)
Quarter: 2021Q3

REPORT INFORMATION
  Report Type: Report from Study
  Country: US (occurrence: US)
  Receive Date: 20210513
  Receipt Date: 20210730
  Transmission Date: 20211014
  Serious: Yes (Other)
  Sender: FDA-Public Use
  Company Number: US-ACADIA PHARMACEUTICALS INC.-ACA-2021-PIM-001397

PATIENT
  Age: 80 Year
  Sex: Male

DRUGS (6)
  1. NUPLAZID [Suspect]
     Active Substance: PIMAVANSERIN TARTRATE
     Indication: PARKINSON^S DISEASE PSYCHOSIS
     Dosage: 10 MILLIGRAM, QD
     Route: 048
     Dates: start: 20210701, end: 20210705
  2. NUPLAZID [Suspect]
     Active Substance: PIMAVANSERIN TARTRATE
     Indication: DELUSION
  3. NUPLAZID [Suspect]
     Active Substance: PIMAVANSERIN TARTRATE
     Indication: DELUSION
  4. NUPLAZID [Suspect]
     Active Substance: PIMAVANSERIN TARTRATE
     Indication: PARKINSON^S DISEASE PSYCHOSIS
     Dosage: 34 MILLIGRAM, QD
     Route: 048
     Dates: start: 2019
  5. NUPLAZID [Suspect]
     Active Substance: PIMAVANSERIN TARTRATE
     Indication: HALLUCINATION
     Dosage: 34 MILLIGRAM, QD
     Route: 048
     Dates: start: 2021, end: 2021
  6. NUPLAZID [Suspect]
     Active Substance: PIMAVANSERIN TARTRATE
     Indication: HALLUCINATION

REACTIONS (10)
  - Prescribed underdose [Unknown]
  - Somnolence [Recovered/Resolved]
  - Swollen tongue [Recovered/Resolved]
  - Drug ineffective [Unknown]
  - Somnolence [Unknown]
  - Confusional state [Unknown]
  - Cerebrovascular accident [Unknown]
  - Adverse drug reaction [Unknown]
  - Weight decreased [Unknown]
  - Feeling abnormal [Unknown]

NARRATIVE: CASE EVENT DATE: 202009
